FAERS Safety Report 9370330 (Version 2)
Quarter: 2014Q3

REPORT INFORMATION
  Report Type: Spontaneous
  Country: US (occurrence: US)
  Receive Date: 20130626
  Receipt Date: 20140813
  Transmission Date: 20150326
  Serious: Yes (Hospitalization)
  Sender: FDA-Public Use
  Company Number: US-BAYER-2013-078089

PATIENT
  Age: 31 Year
  Sex: Female

DRUGS (18)
  1. ATIVAN [Concomitant]
     Active Substance: LORAZEPAM
     Dosage: UNK
     Dates: start: 20060409
  2. ACETAMINOPHEN. [Concomitant]
     Active Substance: ACETAMINOPHEN
     Dosage: UNK
     Dates: start: 20060409
  3. ZANTAC [Concomitant]
     Active Substance: RANITIDINE HYDROCHLORIDE
  4. NITROGLYCERIN. [Concomitant]
     Active Substance: NITROGLYCERIN
     Dosage: UNK
     Dates: start: 20060409
  5. HEP-LOCK [Concomitant]
     Active Substance: HEPARIN SODIUM
     Dosage: UNK
     Dates: start: 20060409
  6. LUNESTA [Concomitant]
     Active Substance: ESZOPICLONE
  7. LOPRESSOR [Concomitant]
     Active Substance: METOPROLOL TARTRATE
  8. NITRO-DUR [Concomitant]
     Active Substance: NITROGLYCERIN
  9. MORPHINE [Concomitant]
     Active Substance: MORPHINE
     Dosage: UNK
     Dates: start: 20060410
  10. ASPIRIN. [Concomitant]
     Active Substance: ASPIRIN
     Dosage: UNK
     Dates: start: 20060409
  11. METOPROLOL [Concomitant]
     Active Substance: METOPROLOL
     Dosage: UNK
     Dates: start: 20060409
  12. KLONOPIN [Concomitant]
     Active Substance: CLONAZEPAM
  13. PAXIL [Concomitant]
     Active Substance: PAROXETINE HYDROCHLORIDE
  14. DILAUDID [Concomitant]
     Active Substance: HYDROMORPHONE HYDROCHLORIDE
     Indication: PAIN
  15. YASMIN [Suspect]
     Active Substance: DROSPIRENONE\ETHINYL ESTRADIOL
     Dosage: UNK
     Dates: start: 200601, end: 20060411
  16. PHENERGAN [Concomitant]
     Active Substance: PROMETHAZINE HYDROCHLORIDE
     Dosage: UNK
     Dates: start: 20060410
  17. PROZAC [Concomitant]
     Active Substance: FLUOXETINE HYDROCHLORIDE
  18. INDOMETHACIN. [Concomitant]
     Active Substance: INDOMETHACIN

REACTIONS (9)
  - Anhedonia [None]
  - Pain [Recovered/Resolved]
  - General physical health deterioration [Recovered/Resolved]
  - Anxiety [None]
  - Emotional distress [None]
  - Pain [None]
  - Injury [Recovered/Resolved]
  - Pulmonary embolism [Recovered/Resolved]
  - Off label use [None]

NARRATIVE: CASE EVENT DATE: 20060411
